APPROVED DRUG PRODUCT: FLUOCINONIDE
Active Ingredient: FLUOCINONIDE
Strength: 0.05%
Dosage Form/Route: OINTMENT;TOPICAL
Application: A207538 | Product #001 | TE Code: AB
Applicant: CHARTWELL RX SCIENCES LLC
Approved: Jul 31, 2017 | RLD: No | RS: No | Type: RX